FAERS Safety Report 16834732 (Version 4)
Quarter: 2020Q1

REPORT INFORMATION
  Report Type: Report from Study
  Country: CA (occurrence: CA)
  Receive Date: 20190920
  Receipt Date: 20200207
  Transmission Date: 20200409
  Serious: Yes (Death, Life-Threatening, Hospitalization, Other)
  Sender: FDA-Public Use
  Company Number: PHHY2019CA215765

PATIENT
  Age: 56 Year
  Sex: Female
  Weight: 69.3 kg

DRUGS (2)
  1. COSENTYX [Suspect]
     Active Substance: SECUKINUMAB
     Dosage: 300 MG, Q4W
     Route: 058
     Dates: start: 201803, end: 20180423
  2. COSENTYX [Suspect]
     Active Substance: SECUKINUMAB
     Indication: PSORIASIS
     Dosage: 450 MG, Q3W
     Route: 058
     Dates: start: 20171006

REACTIONS (7)
  - Hepatic cancer [Not Recovered/Not Resolved]
  - Hepatic mass [Not Recovered/Not Resolved]
  - Cholangiocarcinoma [Unknown]
  - Death [Fatal]
  - Abdominal pain [Not Recovered/Not Resolved]
  - Gastrointestinal necrosis [Unknown]
  - Inappropriate schedule of product administration [Unknown]

NARRATIVE: CASE EVENT DATE: 20171006
